FAERS Safety Report 7930646-5 (Version None)
Quarter: 2011Q4

REPORT INFORMATION
  Report Type: 
  Country: None (occurrence: None)
  Receive Date: 20111117
  Receipt Date: 20111103
  Transmission Date: 20120403
  Serious: Yes (Other)
  Sender: FDA-Public Use
  Company Number: 1103872

PATIENT
  Age: 36 Year
  Sex: Male

DRUGS (17)
  1. CYCLOPHOSPHAMIDE [Suspect]
     Indication: T-CELL PROLYMPHOCYTIC LEUKAEMIA
     Dosage: 300 MG/M^2, INTRAVENOUS (NOT OTHERWISE SPECIFIED)
     Route: 042
  2. LEUCOVORIN CALCIUM [Concomitant]
  3. CYTARABINE [Suspect]
     Indication: T-CELL PROLYMPHOCYTIC LEUKAEMIA
     Dosage: 3 G/M^2 TWICE A DAY, INTRAVENOUS (NOT OTHERWISE SPECIFIED)
     Route: 042
  4. DEXAMETHASONE [Suspect]
     Indication: T-CELL PROLYMPHOCYTIC LEUKAEMIA
     Dosage: 40 MG/DAY, INTRAVENOUS (NOT OTHERWISE SPECIFIED)
  5. DOXORUBICIN HCL [Suspect]
     Indication: T-CELL PROLYMPHOCYTIC LEUKAEMIA
     Dosage: 50 MG/M^2
  6. CYTARABINE [Suspect]
     Indication: T-CELL PROLYMPHOCYTIC LEUKAEMIA
     Dosage: 100 MG, INTRATHECAL;
     Route: 039
  7. ALEMTUZUMAB) [Suspect]
     Indication: T-CELL PROLYMPHOCYTIC LEUKAEMIA
     Dosage: 30 MG, SUBCUTANEOUS
     Route: 058
  8. ACYCLOVIR [Concomitant]
  9. SULFAMETHOXAZOLE AND TRIMETHOPRIM [Concomitant]
  10. FLUCONAZOLE [Concomitant]
  11. METHOTREXATE [Suspect]
     Indication: T-CELL PROLYMPHOCYTIC LEUKAEMIA
     Dosage: 200 MG/M^2, INTRAVENOUS (NOT OTHERWISE SPECIFIED); 800 MG/M^2, INTRAVENOUS (NOT OTHERWISE SPECIFIED)
     Route: 042
  12. MESNA [Concomitant]
  13. ACETAMINOPHEN [Concomitant]
  14. METHOTREXATE [Suspect]
     Indication: T-CELL PROLYMPHOCYTIC LEUKAEMIA
     Dosage: 12 MG, INTRATHECAL
     Route: 037
  15. FILGRASTIM [Concomitant]
  16. VINCRISTINE SULFATE [Suspect]
     Indication: T-CELL PROLYMPHOCYTIC LEUKAEMIA
     Dosage: 1.4 MG/M^2, INTRAVENOUS BOLUS
     Route: 040
  17. DIPHENHYDRAMINE HCL [Concomitant]

REACTIONS (2)
  - NEUTROPENIA [None]
  - REFUSAL OF TREATMENT BY PATIENT [None]
